FAERS Safety Report 7758516-6 (Version None)
Quarter: 2011Q3

REPORT INFORMATION
  Report Type: 
  Country: None (occurrence: None)
  Receive Date: 20110825
  Receipt Date: 20110606
  Transmission Date: 20111222
  Serious: Yes (Other)
  Sender: FDA-Public Use
  Company Number: 329406

PATIENT
  Age: 78 Year
  Sex: Female
  Weight: 98 kg

DRUGS (9)
  1. HYDROCHLOROTHIAZIDE [Concomitant]
  2. VICTOZA [Suspect]
     Indication: TYPE 2 DIABETES MELLITUS
     Dosage: 0.6 MG, QD, SUBCUTANEOUS
     Route: 058
     Dates: start: 20110301
  3. COUMADIN [Concomitant]
  4. FENOFIBRATE [Concomitant]
  5. GLYBURIDE [Concomitant]
  6. TYLENOL /00020001/ (PARACETAMOL) [Concomitant]
  7. CARVEDILOL [Concomitant]
  8. VYTORIN [Concomitant]
  9. ADVIL [Suspect]
     Indication: BACK PAIN
     Dosage: 1200 MG, QD, ORAL
     Route: 048
     Dates: end: 20110501

REACTIONS (1)
  - RENAL IMPAIRMENT [None]
